FAERS Safety Report 8261392-9 (Version None)
Quarter: 2012Q1

REPORT INFORMATION
  Report Type: 
  Country: None (occurrence: None)
  Receive Date: 20120327
  Receipt Date: 20100322
  Transmission Date: 20120608
  Serious: Yes (Hospitalization, Other)
  Sender: FDA-Public Use
  Company Number: PHEH2010US02634

PATIENT
  Age: 86 Year
  Sex: Female

DRUGS (3)
  1. CARTIA XT [Concomitant]
  2. LEVOTHYROXINE SODIUM [Concomitant]
  3. GLEEVEC [Suspect]
     Indication: CHRONIC MYELOID LEUKAEMIA
     Dosage: 400 MG, QD, ORAL
     Route: 048
     Dates: start: 20020401

REACTIONS (7)
  - STOMATITIS [None]
  - UPPER RESPIRATORY TRACT INFECTION [None]
  - ABDOMINAL DISCOMFORT [None]
  - CONSTIPATION [None]
  - DIARRHOEA [None]
  - DEPRESSION [None]
  - DRUG INTERACTION [None]
